FAERS Safety Report 22688653 (Version 3)
Quarter: 2023Q4

REPORT INFORMATION
  Report Type: Spontaneous
  Country: US (occurrence: US)
  Receive Date: 20230710
  Receipt Date: 20231101
  Transmission Date: 20240110
  Serious: Yes (Hospitalization)
  Sender: FDA-Public Use
  Company Number: US-KARYOPHARM-2023KPT001497

PATIENT

DRUGS (2)
  1. XPOVIO [Suspect]
     Active Substance: SELINEXOR
     Indication: Plasma cell myeloma
     Dosage: 100 MG, WEEKLY
     Route: 048
     Dates: start: 20230608, end: 202306
  2. XPOVIO [Suspect]
     Active Substance: SELINEXOR
     Dosage: 100 MG, WEEKLY
     Route: 048
     Dates: start: 2023, end: 2023

REACTIONS (12)
  - Clostridium difficile colitis [Unknown]
  - Urinary tract infection [Not Recovered/Not Resolved]
  - Confusional state [Unknown]
  - Upper respiratory tract infection [Unknown]
  - Haemoglobin decreased [Not Recovered/Not Resolved]
  - Renal impairment [Unknown]
  - Nausea [Not Recovered/Not Resolved]
  - Vomiting [Unknown]
  - Asthenia [Unknown]
  - Decreased appetite [Unknown]
  - Fatigue [Not Recovered/Not Resolved]
  - Platelet count decreased [Not Recovered/Not Resolved]

NARRATIVE: CASE EVENT DATE: 20230101
